FAERS Safety Report 7377703-2 (Version None)
Quarter: 2011Q1

REPORT INFORMATION
  Report Type: 
  Country: None (occurrence: None)
  Receive Date: 20110328
  Receipt Date: 20110318
  Transmission Date: 20110831
  Serious: Yes (Life-Threatening)
  Sender: FDA-Public Use
  Company Number: FR-JNJFOC-20110308571

PATIENT
  Sex: Female

DRUGS (7)
  1. HEPARIN SODIUM [Concomitant]
     Route: 065
  2. CONTRAMAL [Suspect]
     Indication: PRODUCT USED FOR UNKNOWN INDICATION
     Route: 065
  3. ULTIVA [Suspect]
     Indication: PRODUCT USED FOR UNKNOWN INDICATION
     Route: 042
  4. ESMERON [Suspect]
     Indication: PRODUCT USED FOR UNKNOWN INDICATION
     Route: 042
  5. PROPOFOL [Suspect]
     Indication: PRODUCT USED FOR UNKNOWN INDICATION
     Route: 042
  6. DROPERIDOL [Concomitant]
     Route: 065
  7. CEFAMANDOLE SODIUM [Concomitant]
     Route: 065

REACTIONS (2)
  - COMA [None]
  - HYPOXIA [None]
